FAERS Safety Report 5801060-3 (Version None)
Quarter: 2008Q3

REPORT INFORMATION
  Report Type: 
  Country: None (occurrence: None)
  Receive Date: 20080704
  Receipt Date: 20080630
  Transmission Date: 20090109
  Serious: Yes (Hospitalization)
  Sender: FDA-Public Use
  Company Number: US-ELI_LILLY_AND_COMPANY-US200806006621

PATIENT
  Sex: Female

DRUGS (2)
  1. HUMALOG [Suspect]
     Indication: DIABETES MELLITUS
     Dates: start: 20000101
  2. FORTEO [Suspect]
     Dates: start: 20080625

REACTIONS (4)
  - AGITATION [None]
  - ARTHRALGIA [None]
  - HIP FRACTURE [None]
  - LOWER LIMB FRACTURE [None]
